FAERS Safety Report 7932207-0 (Version None)
Quarter: 2011Q4

REPORT INFORMATION
  Report Type: 
  Country: None (occurrence: None)
  Receive Date: 20111121
  Receipt Date: 20111111
  Transmission Date: 20120403
  Serious: Yes (Hospitalization, Other)
  Sender: FDA-Public Use
  Company Number: US-ELI_LILLY_AND_COMPANY-US201110002340

PATIENT
  Age: 65 Year
  Sex: Male

DRUGS (21)
  1. GLYBURIDE [Concomitant]
     Indication: TYPE 2 DIABETES MELLITUS
     Dosage: 2.5 MG, QD
  2. LISINOPRIL [Concomitant]
     Indication: HYPERTENSION
     Dosage: 20 MG, QD
     Dates: start: 20061102
  3. JANUVIA [Concomitant]
     Indication: TYPE 2 DIABETES MELLITUS
     Dosage: 100 MG, EACH MORNING
     Dates: start: 20071026
  4. ATENOLOL [Concomitant]
     Dosage: 25 MG, QD
     Dates: start: 20061102, end: 20080404
  5. CARDURA [Concomitant]
     Dosage: 4 MG, EACH EVENING
     Dates: start: 20080627
  6. METFORMIN HCL [Concomitant]
     Indication: TYPE 2 DIABETES MELLITUS
     Dosage: 500 MG, BID
     Dates: start: 20061121
  7. ACTOS [Concomitant]
     Indication: TYPE 2 DIABETES MELLITUS
     Dosage: 15 MG, EACH MORNING
     Dates: start: 20090330
  8. LISINOPRIL [Concomitant]
     Dosage: 40 MG, QD
  9. HYDROCHLOROTHIAZIDE [Concomitant]
     Indication: HYPERTENSION
     Dosage: 25 MG, QD
  10. BYSTOLIC [Concomitant]
     Indication: HYPERTENSION
     Dosage: 10 MG, EACH EVENING
     Dates: start: 20080627
  11. BYETTA [Suspect]
     Dosage: 10 UG, BID
     Route: 058
     Dates: start: 20080107, end: 20110108
  12. BYSTOLIC [Concomitant]
     Dosage: 20 MG, EACH EVENING
     Dates: start: 20091202
  13. GLYBURIDE [Concomitant]
     Dosage: 10 MG, EACH MORNING
     Dates: start: 20070830
  14. CARDURA [Concomitant]
     Indication: BENIGN PROSTATIC HYPERPLASIA
     Dosage: 1 MG, EACH EVENING
  15. CARDURA [Concomitant]
     Dosage: 2 MG, EACH EVENING
     Dates: start: 20080516
  16. AVODART [Concomitant]
     Indication: BENIGN PROSTATIC HYPERPLASIA
     Dosage: 0.5 MG, EACH EVENING
     Dates: start: 20080728
  17. BYETTA [Suspect]
     Indication: TYPE 2 DIABETES MELLITUS
     Dosage: 5 UG, BID
     Route: 058
     Dates: start: 20071130, end: 20080107
  18. LOVASTATIN [Concomitant]
     Indication: HYPERLIPIDAEMIA
     Dosage: 40 MG, QD
     Dates: start: 20061121
  19. ATENOLOL [Concomitant]
     Dosage: 100 MG, QD
  20. TOPROL-XL [Concomitant]
     Indication: HYPERTENSION
     Dosage: 100 MG, EACH MORNING
     Dates: start: 20080404, end: 20080627
  21. OMEPRAZOLE [Concomitant]
     Indication: GASTROOESOPHAGEAL REFLUX DISEASE
     Dosage: 20 MG, EACH MORNING
     Dates: start: 20100607

REACTIONS (4)
  - PANCREATITIS ACUTE [None]
  - RENAL FAILURE [None]
  - WEIGHT DECREASED [None]
  - OSTEOARTHRITIS [None]
